FAERS Safety Report 24788505 (Version 1)
Quarter: 2024Q4

REPORT INFORMATION
  Report Type: Spontaneous
  Country: US (occurrence: US)
  Receive Date: 20241230
  Receipt Date: 20241230
  Transmission Date: 20250115
  Serious: Yes (Life-Threatening, Other)
  Sender: BAYER HEALTHCARE LLC
  Company Number: US-BAYER-2024A179817

PATIENT
  Age: 75 Year
  Sex: Female

DRUGS (2)
  1. ASPIRIN [Suspect]
     Active Substance: ASPIRIN
     Indication: Antiplatelet therapy
  2. TICAGRELOR [Suspect]
     Active Substance: TICAGRELOR
     Indication: Antiplatelet therapy

REACTIONS (6)
  - Shock haemorrhagic [None]
  - Multiple organ dysfunction syndrome [None]
  - Haemorrhage [None]
  - Mouth haemorrhage [None]
  - Melaena [None]
  - Labelled drug-drug interaction medication error [None]
